FAERS Safety Report 23494763 (Version 1)
Quarter: 2024Q1

REPORT INFORMATION
  Report Type: Spontaneous
  Country: US (occurrence: None)
  Receive Date: 20240206
  Receipt Date: 20240206
  Transmission Date: 20240409
  Serious: Yes (Other)
  Sender: FDA-Public Use
  Company Number: None

PATIENT
  Age: 20 Year
  Sex: Female
  Weight: 67.95 kg

DRUGS (1)
  1. TESTOSTERONE CYPIONATE [Suspect]
     Active Substance: TESTOSTERONE CYPIONATE
     Indication: Gender dysphoria
     Dosage: 1 INJECTION INTRAMUSCULAR
     Route: 030
     Dates: start: 20220201

REACTIONS (2)
  - Paraesthesia [None]
  - Pruritus [None]

NARRATIVE: CASE EVENT DATE: 20240102
